FAERS Safety Report 9007358 (Version 1)
Quarter: 2013Q1

REPORT INFORMATION
  Report Type: Spontaneous
  Country: US (occurrence: US)
  Receive Date: 20130110
  Receipt Date: 20130110
  Transmission Date: 20140127
  Serious: Yes (Death)
  Sender: FDA-Public Use
  Company Number: US-009507513-1301USA001638

PATIENT
  Age: 63 Year
  Sex: Male

DRUGS (13)
  1. MONTELUKAST SODIUM [Suspect]
     Dosage: 10 MG, QD
  2. TRAMADOL HYDROCHLORIDE [Suspect]
     Indication: CHRONIC OBSTRUCTIVE PULMONARY DISEASE
     Dosage: 50 MG, QD
  3. SERETIDE [Suspect]
     Dosage: 500
  4. ALBUTEROL [Suspect]
     Dosage: 100 UG, QD, RESPIRATORY INHALATION
  5. ACETAMINOPHEN [Suspect]
     Dosage: 500 MG, QD
  6. NYSTATIN [Suspect]
     Dosage: 100,000 UNITS
  7. HUMULIN [Suspect]
     Dosage: 100 IU, QD
  8. HUMULIN [Suspect]
     Dosage: 100 U/ML, QD
  9. FOSAMAX [Suspect]
     Dosage: 70 MG, SINGLE
  10. HUMALOG [Suspect]
     Dosage: 100 IU/ML, QD
  11. BUMETANIDE [Suspect]
     Dosage: 1 MG, QD
  12. SPIRIVA [Suspect]
     Dosage: 18 UG, QD
  13. LISINOPRIL [Suspect]
     Dosage: 10 MG, QD

REACTIONS (1)
  - Lobar pneumonia [Fatal]
